FAERS Safety Report 23506430 (Version 1)
Quarter: 2024Q1

REPORT INFORMATION
  Report Type: Spontaneous
  Country: US (occurrence: US)
  Receive Date: 20240209
  Receipt Date: 20240209
  Transmission Date: 20240410
  Serious: No
  Sender: FDA-Public Use
  Company Number: US-IBSA PHARMA INC.-2023IBS000032

PATIENT

DRUGS (1)
  1. TIROSINT-SOL [Suspect]
     Active Substance: LEVOTHYROXINE SODIUM
     Indication: Product used for unknown indication
     Dosage: 13 MICROGRAM PER MILLILITRE
     Route: 048
     Dates: start: 202211

REACTIONS (3)
  - Condition aggravated [Unknown]
  - Malaise [Unknown]
  - Adverse event [Unknown]
